FAERS Safety Report 4339536-0 (Version None)
Quarter: 2004Q2

REPORT INFORMATION
  Report Type: 
  Country: None (occurrence: None)
  Receive Date: 20040412
  Receipt Date: 20040408
  Transmission Date: 20050107
  Serious: Yes (Disabling, Other)
  Sender: FDA-Public Use
  Company Number: 2004-03-1704

PATIENT
  Age: 46 Year
  Sex: Male
  Weight: 95.2554 kg

DRUGS (11)
  1. PEG-INTRON [Suspect]
     Indication: HEPATITIS C
     Dosage: 120-100 MCG* SUBCUTANEOUS
     Route: 058
     Dates: start: 20020927, end: 20040901
  2. PEG-INTRON [Suspect]
     Indication: HEPATITIS C
     Dosage: 120-100 MCG* SUBCUTANEOUS
     Route: 058
     Dates: start: 20040201
  3. REBETOL [Suspect]
     Indication: HEPATITIS C
     Dosage: 1000 MG QD ORAL
     Route: 048
     Dates: start: 20020927
  4. ZOFRAN (ONDANSETRON0 [Concomitant]
  5. ATROPINE [Concomitant]
  6. ZOLOFT [Concomitant]
  7. PROMETHAZINE [Concomitant]
  8. ALPRAZOLAM [Concomitant]
  9. DIAZEPAM [Concomitant]
  10. NEURONTIN [Concomitant]
  11. NEXIUM [Concomitant]

REACTIONS (15)
  - AMNESIA [None]
  - ARTHRALGIA [None]
  - ARTHRITIS [None]
  - ASTHMA [None]
  - FATIGUE [None]
  - FEELING ABNORMAL [None]
  - HEPATOSPLENOMEGALY [None]
  - LUNG DISORDER [None]
  - MIDDLE INSOMNIA [None]
  - NAUSEA [None]
  - NOCTURNAL DYSPNOEA [None]
  - PLATELET COUNT DECREASED [None]
  - RASH [None]
  - SINUSITIS [None]
  - SLEEP DISORDER [None]
